FAERS Safety Report 6018204-3 (Version None)
Quarter: 2008Q4

REPORT INFORMATION
  Report Type: 
  Country: None (occurrence: None)
  Receive Date: 20081223
  Receipt Date: 20081215
  Transmission Date: 20090506
  Serious: Yes (Hospitalization, Other)
  Sender: FDA-Public Use
  Company Number: PHHY2008FR30292

PATIENT
  Sex: Female

DRUGS (5)
  1. EXJADE [Suspect]
     Indication: HAEMOCHROMATOSIS
     Dosage: 500 MG DAILY
     Dates: start: 20080410
  2. METFORMIN HCL [Concomitant]
     Indication: TYPE 2 DIABETES MELLITUS
     Dosage: 850 MG PER OS PER DAY
  3. FOZITEC [Concomitant]
     Indication: HYPERTENSION
     Dosage: 10 MG PER OS PER DAY
  4. TEMERIT [Concomitant]
     Indication: HYPERTENSION
     Dosage: 5 MG PER OS PER DAY
  5. LASILIX [Concomitant]
     Indication: HYPERTENSION
     Dosage: 20 MG PER DAY

REACTIONS (9)
  - ABDOMINAL PAIN [None]
  - BLOOD AMYLASE INCREASED [None]
  - BLOOD BILIRUBIN INCREASED [None]
  - CHOLECYSTECTOMY [None]
  - CHOLECYSTITIS [None]
  - GAMMA-GLUTAMYLTRANSFERASE INCREASED [None]
  - LIPASE INCREASED [None]
  - NAUSEA [None]
  - PANCREATITIS ACUTE [None]
